FAERS Safety Report 20741757 (Version 2)
Quarter: 2022Q2

REPORT INFORMATION
  Report Type: Spontaneous
  Country: US (occurrence: None)
  Receive Date: 20220423
  Receipt Date: 20220527
  Transmission Date: 20220720
  Serious: Yes (Death)
  Sender: FDA-Public Use
  Company Number: US-ROCHE-3080864

PATIENT
  Sex: Male

DRUGS (6)
  1. RITUXAN [Suspect]
     Active Substance: RITUXIMAB
     Indication: Rheumatoid arthritis
     Dosage: 500 MG/50ML SDV (INFUSE 1000MG IV ON WEEK 0 AND WEEK 2, THEN REPEAT EVERY 6 MONTHS)
     Route: 041
     Dates: start: 20210203, end: 20220201
  2. DAYPRO [Concomitant]
     Active Substance: OXAPROZIN
  3. ENBREL [Concomitant]
     Active Substance: ETANERCEPT
     Dosage: 50 MG/ML
  4. LOPID [Concomitant]
     Active Substance: GEMFIBROZIL
  5. VITAMIN B1 [Concomitant]
     Active Substance: THIAMINE HYDROCHLORIDE
  6. ZANTAC [Concomitant]
     Active Substance: RANITIDINE HYDROCHLORIDE

REACTIONS (1)
  - COVID-19 [Fatal]
